FAERS Safety Report 6880163-9 (Version None)
Quarter: 2010Q3

REPORT INFORMATION
  Report Type: 
  Country: None (occurrence: None)
  Receive Date: 20100728
  Receipt Date: 20100308
  Transmission Date: 20110219
  Serious: Yes (Other)
  Sender: FDA-Public Use
  Company Number: US-BRISTOL-MYERS SQUIBB COMPANY-15008055

PATIENT

DRUGS (1)
  1. SPRYCEL [Suspect]
     Dosage: DOSE REDUCED TO 70MG,50MG AND THEN 35MG.

REACTIONS (1)
  - PLEURAL EFFUSION [None]
